FAERS Safety Report 9334679 (Version 1)
Quarter: 2013Q2

REPORT INFORMATION
  Report Type: Spontaneous
  Country: US (occurrence: US)
  Receive Date: 20130606
  Receipt Date: 20130606
  Transmission Date: 20140414
  Serious: No
  Sender: FDA-Public Use
  Company Number: US-AMGEN-USASP2013021610

PATIENT
  Age: 75 Year
  Sex: Female

DRUGS (5)
  1. PROLIA [Suspect]
     Indication: OSTEOPOROSIS
     Dosage: UNK
     Dates: start: 201110
  2. CALCIUM [Concomitant]
  3. VITAMIN D3 [Concomitant]
  4. FISH OIL [Concomitant]
  5. ATORVASTATIN [Concomitant]

REACTIONS (1)
  - Pain in extremity [Recovered/Resolved]
